FAERS Safety Report 19900589 (Version 1)
Quarter: 2021Q3

REPORT INFORMATION
  Report Type: Spontaneous
  Country: US (occurrence: US)
  Receive Date: 20210930
  Receipt Date: 20210930
  Transmission Date: 20211014
  Serious: Yes (Life-Threatening, Other)
  Sender: FDA-Public Use
  Company Number: None

PATIENT
  Age: 92 Year
  Sex: Male
  Weight: 74 kg

DRUGS (7)
  1. CALCIUM?MAG OXIDE?VITAMIN D3 [Concomitant]
  2. AMLODIPINE [Concomitant]
     Active Substance: AMLODIPINE BESYLATE
  3. COENZYME Q [Concomitant]
  4. LUTEIN 6 MG [Concomitant]
  5. TAMSULOSIN 0.4 MG [Concomitant]
     Active Substance: TAMSULOSIN
  6. PROMACTA [Suspect]
     Active Substance: ELTROMBOPAG OLAMINE
     Indication: IMMUNE THROMBOCYTOPENIA
     Route: 048
  7. PREDNISONE 10 MG DAILY [Concomitant]
     Dates: start: 20210811, end: 20210930

REACTIONS (7)
  - Asthenia [None]
  - Eating disorder [None]
  - Delusion [None]
  - Sleep disorder [None]
  - Depression [None]
  - Product complaint [None]
  - Suicidal behaviour [None]

NARRATIVE: CASE EVENT DATE: 20210922
